FAERS Safety Report 9224444 (Version 1)
Quarter: 2013Q2

REPORT INFORMATION
  Report Type: Spontaneous
  Country: US (occurrence: None)
  Receive Date: 20130409
  Receipt Date: 20130409
  Transmission Date: 20140414
  Serious: Yes (Life-Threatening, Hospitalization, Disabling)
  Sender: FDA-Public Use
  Company Number: None

PATIENT
  Age: 26 Year
  Sex: Female
  Weight: 63.5 kg

DRUGS (1)
  1. LO LESTRIN FE [Suspect]
     Indication: MENSTRUATION IRREGULAR
     Dates: start: 20121215, end: 20130326

REACTIONS (1)
  - Cerebrovascular accident [None]
